FAERS Safety Report 8392361-6 (Version None)
Quarter: 2012Q2

REPORT INFORMATION
  Report Type: 
  Country: None (occurrence: None)
  Receive Date: 20120529
  Receipt Date: 20120514
  Transmission Date: 20120825
  Serious: Yes (Death)
  Sender: FDA-Public Use
  Company Number: US-ROCHE-1072722

PATIENT
  Age: 29 Year

DRUGS (1)
  1. AVASTIN [Suspect]
     Indication: SARCOMA
     Dosage: 12 DOSES

REACTIONS (1)
  - HAEMORRHAGE INTRACRANIAL [None]
